FAERS Safety Report 18985415 (Version 1)
Quarter: 2021Q1

REPORT INFORMATION
  Report Type: Spontaneous
  Country: US (occurrence: US)
  Receive Date: 20210306
  Receipt Date: 20210306
  Transmission Date: 20210420
  Serious: Yes (Hospitalization)
  Sender: FDA-Public Use
  Company Number: None

PATIENT
  Age: 63 Year
  Sex: Female
  Weight: 82.1 kg

DRUGS (12)
  1. ASPIRIN. [Suspect]
     Active Substance: ASPIRIN
     Dates: end: 20210225
  2. ALEVE [Concomitant]
     Active Substance: NAPROXEN SODIUM
  3. GLUCOPHAGE [Concomitant]
     Active Substance: METFORMIN HYDROCHLORIDE
  4. MAG?OX [Concomitant]
     Active Substance: MAGNESIUM OXIDE
  5. CYMBALTA [Concomitant]
     Active Substance: DULOXETINE HYDROCHLORIDE
  6. TRAMADOL. [Concomitant]
     Active Substance: TRAMADOL
  7. CLARITIN [Concomitant]
     Active Substance: LORATADINE
  8. CYANOCOBALAMIN. [Concomitant]
     Active Substance: CYANOCOBALAMIN
  9. EXEMESTANE. [Concomitant]
     Active Substance: EXEMESTANE
  10. POTASSIUM [Concomitant]
     Active Substance: POTASSIUM
  11. JARDIANCE [Concomitant]
     Active Substance: EMPAGLIFLOZIN
  12. LIPITOR [Concomitant]
     Active Substance: ATORVASTATIN CALCIUM

REACTIONS (16)
  - Pericardial effusion [None]
  - Blood bilirubin increased [None]
  - Dyspnoea exertional [None]
  - Coronary artery stenosis [None]
  - Pulmonary oedema [None]
  - Pleural effusion [None]
  - Hypoxia [None]
  - Cardiomegaly [None]
  - Bundle branch block left [None]
  - Left ventricular dysfunction [None]
  - Blood glucose increased [None]
  - Acute respiratory failure [None]
  - Cardiac dysfunction [None]
  - Dyspnoea [None]
  - Cardiac failure congestive [None]
  - Cardiomyopathy [None]

NARRATIVE: CASE EVENT DATE: 20210225
